FAERS Safety Report 7793241-7 (Version None)
Quarter: 2011Q3

REPORT INFORMATION
  Report Type: 
  Country: None (occurrence: None)
  Receive Date: 20110929
  Receipt Date: 20110916
  Transmission Date: 20111222
  Serious: Yes (Hospitalization, Other)
  Sender: FDA-Public Use
  Company Number: 1000024111

PATIENT
  Age: 84 Year
  Sex: Female

DRUGS (11)
  1. MEMANTINE [Suspect]
     Indication: DEMENTIA ALZHEIMER'S TYPE
     Dosage: SEE IMAGE
     Route: 048
     Dates: start: 20110702, end: 20110708
  2. MEMANTINE [Suspect]
     Indication: DEMENTIA ALZHEIMER'S TYPE
     Dosage: SEE IMAGE
     Route: 048
     Dates: start: 20110709, end: 20110715
  3. MEMANTINE [Suspect]
     Indication: DEMENTIA ALZHEIMER'S TYPE
     Dosage: SEE IMAGE
     Route: 048
     Dates: start: 20110716, end: 20110722
  4. MEMANTINE [Suspect]
     Indication: DEMENTIA ALZHEIMER'S TYPE
     Dosage: SEE IMAGE
     Route: 048
     Dates: start: 20110723
  5. RASILEZ (ALISKIREN FUMARATE) (ALISKIREN FUMARATE) [Concomitant]
  6. MUCOSOLVAN (AMBROXOL HYDROCHLORIDE) (AMBROXOL HYDROCHLORIDE) [Concomitant]
  7. SIGMART (NICORANDIL) (NICORANDIL) [Concomitant]
  8. STAYBLA (IMIDAFENACIN) (IMIDAFENACIN) [Concomitant]
  9. SERMION (NICERGOLINE) (NICERGOLINE) [Concomitant]
  10. PURSENNID (SENNOSIDE) (SENNOSIDE) [Concomitant]
  11. THEODUR (THEOPHYLLINE) (THEOPHYLLINE) [Concomitant]

REACTIONS (7)
  - OEDEMA PERIPHERAL [None]
  - MALAISE [None]
  - DECREASED APPETITE [None]
  - BLOOD UREA INCREASED [None]
  - PULMONARY CONGESTION [None]
  - PNEUMONIA [None]
  - CARDIAC FAILURE CONGESTIVE [None]
